FAERS Safety Report 20605050 (Version 1)
Quarter: 2022Q1

REPORT INFORMATION
  Report Type: Report from Study
  Country: US (occurrence: US)
  Receive Date: 20220317
  Receipt Date: 20220317
  Transmission Date: 20220424
  Serious: Yes (Hospitalization)
  Sender: FDA-Public Use
  Company Number: US-GILEAD-2022-0573397

PATIENT
  Age: 27 Year
  Sex: Female

DRUGS (21)
  1. AZTREONAM LYSINE [Suspect]
     Active Substance: AZTREONAM LYSINE
     Indication: Cystic fibrosis lung
     Dosage: 75 MG, TID FOR 28 DAYS ON AND 28 DAYS OFF
     Route: 055
  2. SINGULAIR [Concomitant]
     Active Substance: MONTELUKAST SODIUM
  3. SENNA-S [DOCUSATE SODIUM;SENNA ALEXANDRINA] [Concomitant]
  4. ZINC [Concomitant]
     Active Substance: ZINC
  5. LEVALBUTEROL TARTRATE [Concomitant]
     Active Substance: LEVALBUTEROL TARTRATE
  6. DIETARY SUPPLEMENT\PROBIOTICS [Concomitant]
     Active Substance: DIETARY SUPPLEMENT\PROBIOTICS
  7. AZITHROMYCIN [Concomitant]
     Active Substance: AZITHROMYCIN
  8. AMITIZA [Concomitant]
     Active Substance: LUBIPROSTONE
  9. DEKAS PLUS [Concomitant]
  10. LORYNA [Concomitant]
     Active Substance: DROSPIRENONE\ETHINYL ESTRADIOL
  11. B12 ACTIVE [Concomitant]
  12. TOBRAMYCIN [Concomitant]
     Active Substance: TOBRAMYCIN
  13. CREON [Concomitant]
     Active Substance: PANCRELIPASE AMYLASE\PANCRELIPASE LIPASE\PANCRELIPASE PROTEASE
  14. TOBI PODHALER [Concomitant]
     Active Substance: TOBRAMYCIN
  15. RETINOL [Concomitant]
     Active Substance: RETINOL
  16. CALCIUM [Concomitant]
     Active Substance: CALCIUM
  17. XOPENEX [Concomitant]
     Active Substance: LEVALBUTEROL HYDROCHLORIDE
  18. IRON [Concomitant]
     Active Substance: IRON
  19. VITAMIN D3 [Concomitant]
     Active Substance: CHOLECALCIFEROL
  20. MVW COMPLETE FORMULATION CHEWABLES [Concomitant]
  21. SODIUM CHLORIDE [Concomitant]
     Active Substance: SODIUM CHLORIDE

REACTIONS (1)
  - Device issue [Unknown]
